FAERS Safety Report 12398976 (Version 1)
Quarter: 2016Q2

REPORT INFORMATION
  Report Type: Spontaneous
  Country: SE (occurrence: SE)
  Receive Date: 20160524
  Receipt Date: 20160524
  Transmission Date: 20160815
  Serious: Yes (Other)
  Sender: FDA-Public Use
  Company Number: SE-009507513-1605SWE010858

PATIENT
  Age: 57 Year
  Sex: Female

DRUGS (6)
  1. REMERON [Suspect]
     Active Substance: MIRTAZAPINE
     Dosage: 45 MG, UNKNOWN
     Route: 048
  2. REMERON [Suspect]
     Active Substance: MIRTAZAPINE
     Dosage: 30 MG, UNKNOWN
  3. XANOR [Concomitant]
     Active Substance: ALPRAZOLAM
  4. REMERON [Suspect]
     Active Substance: MIRTAZAPINE
     Indication: DECREASED APPETITE
     Dosage: 15 MG, QD
     Dates: start: 1999
  5. REMERON [Suspect]
     Active Substance: MIRTAZAPINE
     Indication: MALAISE
     Dosage: 60 MG, UNKNOWN
     Route: 048
  6. REMERON [Suspect]
     Active Substance: MIRTAZAPINE
     Dosage: 45 MG, QPM
     Route: 048

REACTIONS (7)
  - Colon cancer [Recovered/Resolved]
  - Anxiety [Not Recovered/Not Resolved]
  - Product use issue [Unknown]
  - Endometrial hyperplasia [Recovered/Resolved]
  - Nausea [Not Recovered/Not Resolved]
  - Therapeutic response unexpected [Unknown]
  - Abdominal pain upper [Not Recovered/Not Resolved]

NARRATIVE: CASE EVENT DATE: 1999
